FAERS Safety Report 18430633 (Version 2)
Quarter: 2020Q4

REPORT INFORMATION
  Report Type: Spontaneous
  Country: US (occurrence: US)
  Receive Date: 20201027
  Receipt Date: 20201028
  Transmission Date: 20210114
  Serious: No
  Sender: FDA-Public Use
  Company Number: US-TEVA-2020-US-1841796

PATIENT
  Sex: Female

DRUGS (2)
  1. AMLODIPINE [Concomitant]
     Active Substance: AMLODIPINE BESYLATE
     Indication: BLOOD PRESSURE ABNORMAL
     Route: 065
  2. ALBUTEROL SULFATE HFA TEVA [Suspect]
     Active Substance: ALBUTEROL SULFATE
     Indication: ASTHMA
     Route: 065

REACTIONS (13)
  - Product quality issue [Unknown]
  - Blood pressure increased [Unknown]
  - Muscle tightness [Unknown]
  - Wrong technique in product usage process [Unknown]
  - Myalgia [Unknown]
  - Throat irritation [Unknown]
  - Drug ineffective [Unknown]
  - Device delivery system issue [Unknown]
  - Drug intolerance [Unknown]
  - Palpitations [Unknown]
  - Product substitution issue [Unknown]
  - Nervousness [Unknown]
  - Inappropriate schedule of product administration [Unknown]
